FAERS Safety Report 23339484 (Version 1)
Quarter: 2023Q4

REPORT INFORMATION
  Report Type: Spontaneous
  Country: US (occurrence: None)
  Receive Date: 20231226
  Receipt Date: 20231226
  Transmission Date: 20240110
  Serious: No
  Sender: FDA-Public Use
  Company Number: None

PATIENT
  Age: 66 Year
  Sex: Female
  Weight: 65.25 kg

DRUGS (13)
  1. SEMAGLUTIDE [Suspect]
     Active Substance: SEMAGLUTIDE
     Indication: Weight control
     Dosage: OTHER QUANTITY : 2 BOTTLES;?OTHER FREQUENCY : 1X PER WEEK;?
     Route: 030
     Dates: start: 20231014, end: 20231014
  2. ESTRACE [Concomitant]
     Active Substance: ESTRADIOL
  3. lisinopril^HCTZ [Concomitant]
  4. MORPHINE [Concomitant]
     Active Substance: MORPHINE
  5. FENTANYL [Concomitant]
     Active Substance: FENTANYL\FENTANYL CITRATE
  6. ABILIFY [Concomitant]
     Active Substance: ARIPIPRAZOLE
  7. LAMICTAL [Concomitant]
     Active Substance: LAMOTRIGINE
  8. CYMBALTA [Concomitant]
     Active Substance: DULOXETINE HYDROCHLORIDE
  9. IRON [Concomitant]
     Active Substance: IRON
  10. VITAMINS [Concomitant]
     Active Substance: VITAMINS
  11. POTASSIUM [Concomitant]
     Active Substance: POTASSIUM
  12. MAGNESIUM [Concomitant]
     Active Substance: MAGNESIUM
  13. VITAMIN B12 [Concomitant]
     Active Substance: CYANOCOBALAMIN

REACTIONS (6)
  - Feeling abnormal [None]
  - Confusional state [None]
  - Executive dysfunction [None]
  - Malaise [None]
  - Headache [None]
  - Anxiety [None]

NARRATIVE: CASE EVENT DATE: 20231014
